FAERS Safety Report 4356688-7 (Version None)
Quarter: 2004Q2

REPORT INFORMATION
  Report Type: 
  Country: None (occurrence: None)
  Receive Date: 20040511
  Receipt Date: 20040511
  Transmission Date: 20050107
  Serious: Yes (Other)
  Sender: FDA-Public Use
  Company Number: None

PATIENT
  Sex: Female
  Weight: 53.978 kg

DRUGS (1)
  1. SKINZINC SELFWORX INC [Suspect]
     Indication: ECZEMA
     Dosage: APPLICATION 3-4 TIMES TOPICAL
     Route: 061
     Dates: start: 20040426, end: 20040507

REACTIONS (2)
  - INFLAMMATION LOCALISED [None]
  - RASH [None]
